FAERS Safety Report 6271060-0 (Version None)
Quarter: 2009Q3

REPORT INFORMATION
  Report Type: 
  Country: None (occurrence: None)
  Receive Date: 20090716
  Receipt Date: 20090708
  Transmission Date: 20100115
  Serious: Yes (Disabling, Other)
  Sender: FDA-Public Use
  Company Number: US-PURDUE-USA_2007_0030463

PATIENT
  Sex: Male

DRUGS (4)
  1. OXYCONTIN [Suspect]
     Indication: NEURALGIA
     Dosage: 80 MG, BID
     Route: 048
     Dates: start: 20020101, end: 20060901
  2. ANTIDEPRESSANTS [Concomitant]
     Dates: start: 20050101
  3. SYNTHROID [Concomitant]
     Dosage: 0.175 MG, DAILY
  4. VITAMIN A [Concomitant]
     Dosage: 100000 UNIT, DAILY

REACTIONS (16)
  - ANHEDONIA [None]
  - ANXIETY [None]
  - CONSTIPATION [None]
  - DELUSIONAL DISORDER, UNSPECIFIED TYPE [None]
  - DEPRESSION [None]
  - DISABILITY [None]
  - DRUG DEPENDENCE [None]
  - DRUG HYPERSENSITIVITY [None]
  - DRUG WITHDRAWAL SYNDROME [None]
  - HYPERHIDROSIS [None]
  - INJURY [None]
  - OBSESSIVE-COMPULSIVE DISORDER [None]
  - PAIN [None]
  - PARANOIA [None]
  - SEDATION [None]
  - SUICIDAL IDEATION [None]
